FAERS Safety Report 6164636-2 (Version None)
Quarter: 2009Q2

REPORT INFORMATION
  Report Type: 
  Country: None (occurrence: None)
  Receive Date: 20090420
  Receipt Date: 20090407
  Transmission Date: 20091009
  Serious: Yes (Other)
  Sender: FDA-Public Use
  Company Number: ACO_00540_2009

PATIENT
  Age: 81 Year
  Sex: Female

DRUGS (4)
  1. TIZANIDINE HCL [Suspect]
     Indication: DRUG USE FOR UNKNOWN INDICATION
     Dosage: DF ORAL
     Route: 048
  2. PARIET (PARIET) (NOT SPECIFIED) [Suspect]
     Indication: DRUG USE FOR UNKNOWN INDICATION
     Dosage: DF
  3. MUCOSTA [Concomitant]
  4. LORCAM [Concomitant]

REACTIONS (1)
  - ERYTHROPSIA [None]
